FAERS Safety Report 13263489 (Version 15)
Quarter: 2018Q1

REPORT INFORMATION
  Report Type: Spontaneous
  Country: CA (occurrence: CA)
  Receive Date: 20170223
  Receipt Date: 20180322
  Transmission Date: 20180508
  Serious: Yes (Other)
  Sender: FDA-Public Use
  Company Number: CA-CELLTRION INC.-2017CA002084

PATIENT

DRUGS (15)
  1. INFLECTRA [Suspect]
     Active Substance: INFLIXIMAB-DYYB
     Dosage: UNK
     Route: 065
  2. MEZAVANT [Suspect]
     Active Substance: MESALAMINE
     Dosage: 4.8 G, DAILY
     Route: 065
     Dates: start: 2017
  3. INFLECTRA [Suspect]
     Active Substance: INFLIXIMAB-DYYB
     Dosage: 620 MG, THEN EVERY 6 WEEKS
     Route: 042
  4. FISH OIL [Concomitant]
     Active Substance: FISH OIL
     Dosage: UNK, DAILY
  5. FUROSEMIDE. [Concomitant]
     Active Substance: FUROSEMIDE
     Dosage: 20 MG, DAILY
  6. LIPITOR [Concomitant]
     Active Substance: ATORVASTATIN CALCIUM
     Dosage: 40 MG, DAILY
     Route: 048
  7. RAPAFLO [Concomitant]
     Active Substance: SILODOSIN
     Dosage: 8 MG, DAILY
     Route: 048
  8. SALOFALK                           /00000301/ [Concomitant]
     Active Substance: MESALAMINE
     Dosage: UNK, 1-2 WEEKLY
     Dates: start: 20160430
  9. INFLECTRA [Suspect]
     Active Substance: INFLIXIMAB-DYYB
     Indication: COLITIS ULCERATIVE
     Dosage: 600 MG, EVERY 0, 2, 6 WEEKS THEN EVERY 8 WEEKS FOR 12MONTHS
     Route: 042
     Dates: start: 20170131, end: 2017
  10. INFLECTRA [Suspect]
     Active Substance: INFLIXIMAB-DYYB
     Dosage: 620 MG, THEN EVERY 6 WEEKS
     Route: 042
     Dates: start: 20180116, end: 20180227
  11. MEZAVANT [Suspect]
     Active Substance: MESALAMINE
     Indication: PRODUCT USED FOR UNKNOWN INDICATION
     Dosage: 4.8 MG, DAILY
     Route: 048
     Dates: start: 20160528, end: 20170911
  12. DUTASTERIDE. [Concomitant]
     Active Substance: DUTASTERIDE
     Dosage: 0.5 MG, DAILY
     Route: 048
  13. INFLECTRA [Suspect]
     Active Substance: INFLIXIMAB-DYYB
     Dosage: 620 MG, THEN EVERY 6 WEEKS
     Route: 042
  14. INFLECTRA [Suspect]
     Active Substance: INFLIXIMAB-DYYB
     Dosage: 620 MG, THEN EVERY 6 WEEKS
     Route: 042
     Dates: start: 20171204
  15. MULTIVITAMINS                      /00116001/ [Concomitant]
     Active Substance: VITAMINS
     Dosage: UNK, DAILY
     Route: 048

REACTIONS (13)
  - Incontinence [Not Recovered/Not Resolved]
  - Drug level below therapeutic [Unknown]
  - Faeces hard [Not Recovered/Not Resolved]
  - Injection site bruising [Recovering/Resolving]
  - Heart rate decreased [Unknown]
  - Drug dose omission [Unknown]
  - Drug effect incomplete [Unknown]
  - Diarrhoea [Unknown]
  - Body temperature decreased [Unknown]
  - Cough [Recovering/Resolving]
  - Blood pressure increased [Unknown]
  - Poor venous access [Recovered/Resolved]
  - Influenza [Unknown]

NARRATIVE: CASE EVENT DATE: 2017
